FAERS Safety Report 6004706-2 (Version None)
Quarter: 2008Q4

REPORT INFORMATION
  Report Type: 
  Country: None (occurrence: None)
  Receive Date: 20081216
  Receipt Date: 20081211
  Transmission Date: 20090506
  Serious: Yes (Other)
  Sender: FDA-Public Use
  Company Number: US-ROXANE LABORATORIES, INC.-2008-RO-00398RO

PATIENT
  Age: 17 Month
  Sex: Female
  Weight: 9 kg

DRUGS (8)
  1. LIDOCAINE [Suspect]
     Indication: ENDOTRACHEAL INTUBATION
     Route: 042
  2. MIDAZOLAM HCL [Suspect]
     Indication: INDUCTION OF ANAESTHESIA
     Route: 048
  3. ALBUTEROL [Suspect]
     Indication: PROPHYLAXIS
  4. SEVOFLURANE [Suspect]
     Indication: INHALATION THERAPY
     Route: 055
  5. NITROUS OXIDE [Suspect]
     Indication: INHALATION THERAPY
     Route: 055
  6. ALBUTEROL [Concomitant]
     Indication: ASTHMA
  7. BUDESONIDE [Concomitant]
     Indication: ASTHMA
  8. OXYGEN [Concomitant]
     Indication: BRONCHOSPASM

REACTIONS (1)
  - BRONCHOSPASM [None]
